FAERS Safety Report 6956462-9 (Version None)
Quarter: 2010Q3

REPORT INFORMATION
  Report Type: 
  Country: None (occurrence: None)
  Receive Date: 20100830
  Receipt Date: 20100817
  Transmission Date: 20110219
  Serious: No
  Sender: FDA-Public Use
  Company Number: US-BAYER-201031146NA

PATIENT
  Age: 52 Year
  Sex: Male

DRUGS (1)
  1. MAGNEVIST [Suspect]
     Indication: PRODUCT USED FOR UNKNOWN INDICATION
     Dosage: AS USED: 20 ML
     Route: 042
     Dates: start: 20100812, end: 20100812

REACTIONS (2)
  - PRURITUS [None]
  - URTICARIA [None]
